FAERS Safety Report 19435736 (Version 2)
Quarter: 2021Q3

REPORT INFORMATION
  Report Type: Spontaneous
  Country: US (occurrence: US)
  Receive Date: 20210618
  Receipt Date: 20210716
  Transmission Date: 20211014
  Serious: Yes (Other)
  Sender: FDA-Public Use
  Company Number: US-STRIDES ARCOLAB LIMITED-2021SP006599

PATIENT
  Age: 59 Year
  Sex: Male

DRUGS (2)
  1. RANITIDINE. [Suspect]
     Active Substance: RANITIDINE
     Indication: ABDOMINAL DISCOMFORT
     Dosage: UNK (ZANTAC), DAILY
     Route: 048
     Dates: start: 201206, end: 201706
  2. RANITIDINE. [Suspect]
     Active Substance: RANITIDINE
     Dosage: UNK (RANITIDINE), DAILY
     Route: 048
     Dates: start: 201206, end: 201706

REACTIONS (1)
  - Oesophageal carcinoma [Unknown]

NARRATIVE: CASE EVENT DATE: 20170101
